FAERS Safety Report 13715541 (Version 3)
Quarter: 2017Q3

REPORT INFORMATION
  Report Type: Spontaneous
  Country: IT (occurrence: IT)
  Receive Date: 20170705
  Receipt Date: 20170726
  Transmission Date: 20171127
  Serious: Yes (Hospitalization)
  Sender: FDA-Public Use
  Company Number: IT-BAXTER-2017BAX026733

PATIENT
  Age: 61 Year
  Sex: Male
  Weight: 73 kg

DRUGS (4)
  1. DIFLUCAN [Concomitant]
     Active Substance: FLUCONAZOLE
     Indication: PRODUCT USED FOR UNKNOWN INDICATION
     Dosage: 2 CAPSULES
     Route: 048
  2. ENDOXAN BAXTER [Suspect]
     Active Substance: CYCLOPHOSPHAMIDE
     Indication: NON-HODGKIN^S LYMPHOMA
     Dosage: 1 GLASS BOTTLE TYPE III 500 MG, DOSAGES OF 1G AND 500MG WERE USED TO OBTAIN THE DOSE OF 1900MG.
     Route: 042
     Dates: start: 20170616, end: 20170616
  3. ACICLIN [Concomitant]
     Active Substance: ACYCLOVIR
     Indication: PRODUCT USED FOR UNKNOWN INDICATION
     Dosage: 25 TABLETS
     Route: 048
  4. PANTORC [Concomitant]
     Active Substance: PANTOPRAZOLE SODIUM
     Indication: PRODUCT USED FOR UNKNOWN INDICATION
     Dosage: 14 GASTRORESISTANT TABLETS 20MG BLISTER
     Route: 048

REACTIONS (2)
  - Infusion related reaction [Recovering/Resolving]
  - Seizure [Recovering/Resolving]

NARRATIVE: CASE EVENT DATE: 20170616
